FAERS Safety Report 4588721-1 (Version None)
Quarter: 2005Q1

REPORT INFORMATION
  Report Type: 
  Country: None (occurrence: None)
  Receive Date: 20050222
  Receipt Date: 20050110
  Transmission Date: 20050727
  Serious: Yes (Hospitalization)
  Sender: FDA-Public Use
  Company Number: PHRM2005FR00515

PATIENT
  Age: 35 Year
  Sex: Male

DRUGS (6)
  1. TRILEPTAL [Suspect]
     Indication: EPILEPSY
     Dosage: 600 MG, BID
     Route: 048
     Dates: start: 20040312, end: 20040319
  2. SERESTA [Suspect]
     Dosage: 50 MG, TID
     Route: 048
     Dates: start: 20030923, end: 20040403
  3. SUSTIVA [Suspect]
     Dosage: 600 MG DAILY
     Route: 048
     Dates: start: 20040106, end: 20040402
  4. ZERIT [Suspect]
     Dosage: 30 MG, BID
     Route: 048
     Dates: start: 20040106, end: 20040403
  5. VIDEX [Suspect]
     Dosage: 400 MG DAILY
     Route: 048
     Dates: start: 20040106, end: 20040403
  6. GARDENAL [Suspect]
     Dosage: UNK, UNK
     Route: 048
     Dates: start: 20040319, end: 20040401

REACTIONS (11)
  - ASTHENIA [None]
  - FUNGAL INFECTION [None]
  - GAMMA-GLUTAMYLTRANSFERASE INCREASED [None]
  - GENERAL PHYSICAL HEALTH DETERIORATION [None]
  - GLOSSITIS [None]
  - HEPATITIS C [None]
  - LUNG CREPITATION [None]
  - LYMPHADENOPATHY [None]
  - PRURITUS [None]
  - PYREXIA [None]
  - RASH MACULO-PAPULAR [None]
